FAERS Safety Report 24838243 (Version 1)
Quarter: 2025Q1

REPORT INFORMATION
  Report Type: Spontaneous
  Country: US (occurrence: None)
  Receive Date: 20250113
  Receipt Date: 20250113
  Transmission Date: 20250409
  Serious: Yes (Life-Threatening, Hospitalization)
  Sender: FDA-CTU
  Company Number: None

PATIENT
  Age: 75 Year
  Sex: Female
  Weight: 71.1 kg

DRUGS (5)
  1. NIRAPARIB [Suspect]
     Active Substance: NIRAPARIB
     Indication: Ovarian cancer
     Dosage: 200 MG DAILY ORAL ?
     Route: 048
     Dates: start: 20240726, end: 20250106
  2. ATORVASTATIN [Concomitant]
     Active Substance: ATORVASTATIN
     Dates: start: 20240729
  3. LOSARTAN POTASSIUM [Concomitant]
     Active Substance: LOSARTAN POTASSIUM
     Dates: start: 20240731
  4. Magnesium oxide 400mg tablet [Concomitant]
     Dates: start: 20241028
  5. Melatonin 5mg tablet [Concomitant]

REACTIONS (4)
  - Epistaxis [None]
  - Dyspnoea [None]
  - Pancytopenia [None]
  - Aplastic anaemia [None]

NARRATIVE: CASE EVENT DATE: 20250106
